FAERS Safety Report 6753137-6 (Version None)
Quarter: 2010Q2

REPORT INFORMATION
  Report Type: 
  Country: None (occurrence: None)
  Receive Date: 20100603
  Receipt Date: 20100524
  Transmission Date: 20101027
  Serious: Yes (Hospitalization)
  Sender: FDA-Public Use
  Company Number: PHHY2010JP33961

PATIENT
  Sex: Female
  Weight: 34 kg

DRUGS (3)
  1. COMTAN CMT+TAB [Suspect]
     Indication: DRUG EFFECT DECREASED
     Dosage: 400MG, UNK
     Route: 048
     Dates: start: 20080620
  2. CARBIDOPA AND LEVODOPA [Concomitant]
     Indication: PARKINSON'S DISEASE
     Dosage: 350MG, UNK
     Route: 048
     Dates: start: 20050101
  3. SOLANAX [Concomitant]
     Dosage: 0.6 MG
     Route: 048

REACTIONS (2)
  - DYSKINESIA [None]
  - THALAMUS HAEMORRHAGE [None]
